FAERS Safety Report 24978473 (Version 5)
Quarter: 2025Q2

REPORT INFORMATION
  Report Type: Spontaneous
  Country: CA (occurrence: CA)
  Receive Date: 20250217
  Receipt Date: 20250529
  Transmission Date: 20250717
  Serious: Yes (Hospitalization)
  Sender: PFIZER
  Company Number: CA-PFIZER INC-202500035521

PATIENT
  Age: 81 Year
  Sex: Male

DRUGS (1)
  1. RUXIENCE [Suspect]
     Active Substance: RITUXIMAB-PVVR
     Indication: Rheumatoid arthritis
     Route: 042
     Dates: start: 20221018

REACTIONS (7)
  - Mobility decreased [Unknown]
  - Oropharyngeal pain [Recovered/Resolved]
  - Condition aggravated [Unknown]
  - Myalgia [Unknown]
  - Fatigue [Unknown]
  - Chills [Recovered/Resolved]
  - Malaise [Unknown]

NARRATIVE: CASE EVENT DATE: 20240101
